FAERS Safety Report 25745194 (Version 2)
Quarter: 2025Q3

REPORT INFORMATION
  Report Type: Report from Study
  Country: EG (occurrence: EG)
  Receive Date: 20250901
  Receipt Date: 20250908
  Transmission Date: 20251021
  Serious: Yes (Other)
  Sender: ROCHE
  Company Number: EG-ROCHE-10000368236

PATIENT
  Age: 26 Year
  Sex: Male
  Weight: 59 kg

DRUGS (1)
  1. OCREVUS [Suspect]
     Active Substance: OCRELIZUMAB
     Indication: Multiple sclerosis
     Route: 042
     Dates: start: 20230912

REACTIONS (4)
  - Abscess [Recovered/Resolved]
  - Multiple sclerosis [Not Recovered/Not Resolved]
  - Viral skin infection [Recovered/Resolved]
  - Weight decreased [Unknown]

NARRATIVE: CASE EVENT DATE: 20240101
